FAERS Safety Report 23933651 (Version 2)
Quarter: 2024Q2

REPORT INFORMATION
  Report Type: Spontaneous
  Country: US (occurrence: US)
  Receive Date: 20240603
  Receipt Date: 20240614
  Transmission Date: 20240716
  Serious: No
  Sender: FDA-Public Use
  Company Number: US-INCYTE CORPORATION-2024IN004976

PATIENT

DRUGS (2)
  1. OPZELURA [Suspect]
     Active Substance: RUXOLITINIB PHOSPHATE
     Indication: Dermatitis atopic
     Dosage: 60 GRAM, BID, 1.5PERCENT,APPLY TO AFFECTED AREA(S) OF BODY TWICE DAILY FOR ATOPIC DERMATITIS AS DIRE
     Route: 061
     Dates: start: 20240301
  2. OPZELURA [Suspect]
     Active Substance: RUXOLITINIB PHOSPHATE
     Dosage: 60 GRAM, BID, 1.5 PERCENT (APPLY A THIN LAYER TO AFFECTED AREA(S) TWICE DAILY AS DIRECTED)
     Route: 061
     Dates: start: 202405

REACTIONS (3)
  - Arthritis [Unknown]
  - Muscle disorder [Unknown]
  - Gout [Unknown]

NARRATIVE: CASE EVENT DATE: 20240508
